FAERS Safety Report 8202767-3 (Version None)
Quarter: 2012Q1

REPORT INFORMATION
  Report Type: 
  Country: None (occurrence: None)
  Receive Date: 20120312
  Receipt Date: 20120312
  Transmission Date: 20120608
  Serious: No
  Sender: FDA-Public Use
  Company Number: None

PATIENT
  Age: 48 Year
  Sex: Male
  Weight: 108.86 kg

DRUGS (3)
  1. VIVITROL [Suspect]
     Indication: CELLULITIS
     Dosage: 380MG
     Route: 030
  2. VIVITROL [Suspect]
     Indication: ABSCESS
     Dosage: 380MG
     Route: 030
  3. VIVITROL [Concomitant]
     Dosage: 380MG
     Route: 030

REACTIONS (6)
  - INFUSION SITE WARMTH [None]
  - INJECTION SITE PAIN [None]
  - INFUSION SITE ERYTHEMA [None]
  - GAIT DISTURBANCE [None]
  - INSOMNIA [None]
  - INFUSION SITE SWELLING [None]
